FAERS Safety Report 22533410 (Version 1)
Quarter: 2023Q2

REPORT INFORMATION
  Report Type: Spontaneous
  Country: US (occurrence: US)
  Receive Date: 20230608
  Receipt Date: 20230608
  Transmission Date: 20230721
  Serious: Yes (Other)
  Sender: FDA-Public Use
  Company Number: US-002147023-NVSC2023US127044

PATIENT

DRUGS (3)
  1. TERBINAFINE [Suspect]
     Active Substance: TERBINAFINE
     Indication: Product used for unknown indication
     Dosage: UNK
     Route: 065
  2. LAMISIL [Suspect]
     Active Substance: TERBINAFINE HYDROCHLORIDE
     Indication: Dermatophytosis of nail
     Dosage: UNK
     Route: 065
     Dates: end: 20180404
  3. LAMISIL [Suspect]
     Active Substance: TERBINAFINE HYDROCHLORIDE
     Dosage: UNK(TOOK THE TABLETS FOR 7 DAYS, FROM MAY 1ST TO MAY 7TH)
     Route: 065

REACTIONS (3)
  - Oropharyngeal blistering [Unknown]
  - Oral mucosal blistering [Unknown]
  - Blister [Unknown]
